FAERS Safety Report 9230389 (Version 1)
Quarter: 2013Q2

REPORT INFORMATION
  Report Type: Spontaneous
  Country: FR (occurrence: None)
  Receive Date: 20130411
  Receipt Date: 20130411
  Transmission Date: 20140414
  Serious: Yes (Death, Hospitalization)
  Sender: FDA-Public Use
  Company Number: 2013000085

PATIENT
  Age: 91 Year
  Sex: Male

DRUGS (11)
  1. ACEON (PERINDOPRIL ERBUMINE) TABLET [Suspect]
     Indication: PRODUCT USED FOR UNKNOWN INDICATION
     Route: 048
     Dates: end: 20120530
  2. LASILIX SPECIAL [Suspect]
     Indication: PRODUCT USED FOR UNKNOWN INDICATION
  3. ALDACTONE A [Suspect]
     Indication: PRODUCT USED FOR UNKNOWN INDICATION
     Route: 048
     Dates: start: 20120601
  4. CARDENSIEL (BISOPROLOL FUMARATE) [Concomitant]
  5. CORDARONE (AMIODARONE HYDROCHLORIDE) [Concomitant]
  6. COUMADINE (WARFARIN SODIUM) [Concomitant]
  7. MIANSERINE ARROW (MIANSERIN HYDROCHLORIDE) [Concomitant]
  8. SERESTA (OXAZEPAM) [Concomitant]
  9. TRANSIPEG (MACROGOL) [Concomitant]
  10. STILLNOX (ZOLPIDEM TARTRATE) [Concomitant]
  11. KARDEGIC (ACETYLSALICYLATE LYSINE) [Concomitant]

REACTIONS (4)
  - Hypovolaemic shock [None]
  - Renal failure [None]
  - Anuria [None]
  - Renal failure acute [None]
